FAERS Safety Report 13191055 (Version 1)
Quarter: 2017Q1

REPORT INFORMATION
  Report Type: Spontaneous
  Country: US (occurrence: US)
  Receive Date: 20170207
  Receipt Date: 20170207
  Transmission Date: 20170428
  Serious: Yes (Hospitalization, Other)
  Sender: FDA-Public Use
  Company Number: US-SCIEGEN PHARMACEUTICALS INC-2017SCILIT00032

PATIENT
  Age: 55 Year
  Sex: Male

DRUGS (8)
  1. ASPIRIN. [Concomitant]
     Active Substance: ASPIRIN
     Indication: ELECTROCARDIOGRAM
     Dosage: 325 MG, UNK
     Route: 065
  2. PLAVIX [Concomitant]
     Active Substance: CLOPIDOGREL BISULFATE
     Indication: ELECTROCARDIOGRAM
     Dosage: 75 MG, UNK
     Route: 065
  3. ASPIRIN. [Concomitant]
     Active Substance: ASPIRIN
     Indication: TROPONIN INCREASED
  4. HEPARIN [Concomitant]
     Active Substance: HEPARIN SODIUM
     Indication: ELECTROCARDIOGRAM
     Dosage: 5000 UNITS, UNK
     Route: 065
  5. HEPARIN [Concomitant]
     Active Substance: HEPARIN SODIUM
     Indication: TROPONIN
  6. PLAVIX [Concomitant]
     Active Substance: CLOPIDOGREL BISULFATE
     Indication: TROPONIN INCREASED
  7. HYDROCHLOROTHIAZIDE TABLETS [Suspect]
     Active Substance: HYDROCHLOROTHIAZIDE
     Indication: PRODUCT USED FOR UNKNOWN INDICATION
     Dosage: 12.5 MG, UNK
     Route: 065
  8. LISINOPRIL. [Concomitant]
     Active Substance: LISINOPRIL
     Indication: PRODUCT USED FOR UNKNOWN INDICATION
     Dosage: 20 MG, UNK STARTED FOUR MONTHS BEFORE THE ADMISSION
     Route: 065

REACTIONS (8)
  - Electrocardiogram PR prolongation [Unknown]
  - Transaminases increased [Unknown]
  - Cardiac murmur [Unknown]
  - Blood glucose increased [Unknown]
  - Electrocardiogram ST segment elevation [Recovered/Resolved]
  - Hypercalcaemia [Recovered/Resolved]
  - Haemoglobin decreased [Unknown]
  - Troponin T increased [Recovered/Resolved]
